FAERS Safety Report 8453614-6 (Version None)
Quarter: 2012Q2

REPORT INFORMATION
  Report Type: 
  Country: None (occurrence: None)
  Receive Date: 20120620
  Receipt Date: 20120618
  Transmission Date: 20120825
  Serious: Yes (Hospitalization, Disabling, Other)
  Sender: FDA-Public Use
  Company Number: US-MERCK-1110USA04298

PATIENT
  Age: 59 Year
  Sex: Female
  Weight: 59 kg

DRUGS (4)
  1. ALENDRONATE SODIUM [Suspect]
     Indication: OSTEOPOROSIS
     Route: 048
     Dates: start: 20080602, end: 20081101
  2. FOSAMAX [Suspect]
     Route: 048
     Dates: start: 20050117
  3. FOSAMAX [Suspect]
     Route: 048
     Dates: end: 20081101
  4. FOSAMAX [Suspect]
     Indication: OSTEOPOROSIS
     Route: 048
     Dates: start: 19940501, end: 20080201

REACTIONS (53)
  - OSTEONECROSIS OF JAW [None]
  - MYOCARDIAL INFARCTION [None]
  - BACK PAIN [None]
  - ARTHRALGIA [None]
  - CHEILITIS [None]
  - TOOTH LOSS [None]
  - TOOTH FRACTURE [None]
  - HYPERTENSION [None]
  - GINGIVAL BLEEDING [None]
  - GASTROOESOPHAGEAL REFLUX DISEASE [None]
  - INTERMITTENT CLAUDICATION [None]
  - COLITIS [None]
  - CHRONIC OBSTRUCTIVE PULMONARY DISEASE [None]
  - DEAFNESS BILATERAL [None]
  - DEVICE FAILURE [None]
  - PALPITATIONS [None]
  - IMPAIRED FASTING GLUCOSE [None]
  - OEDEMA PERIPHERAL [None]
  - DENTAL PLAQUE [None]
  - BREAST CALCIFICATIONS [None]
  - TOOTH DEPOSIT [None]
  - SENSITIVITY OF TEETH [None]
  - BURSITIS [None]
  - CORONARY ARTERY DISEASE [None]
  - ABSCESS [None]
  - CYSTITIS [None]
  - DENTAL CARIES [None]
  - ORAL INFECTION [None]
  - TOOTH DISCOLOURATION [None]
  - EMPHYSEMA [None]
  - DENTAL DISCOMFORT [None]
  - HERPES ZOSTER [None]
  - DRY MOUTH [None]
  - DEVICE BREAKAGE [None]
  - CERUMEN IMPACTION [None]
  - ASTHMA [None]
  - CEREBROVASCULAR DISORDER [None]
  - MEMORY IMPAIRMENT [None]
  - KYPHOSIS [None]
  - OESTROGEN DEFICIENCY [None]
  - TEMPOROMANDIBULAR JOINT SYNDROME [None]
  - URINARY TRACT INFECTION [None]
  - POLLAKIURIA [None]
  - DRUG HYPERSENSITIVITY [None]
  - CATARACT [None]
  - CARDIAC DISORDER [None]
  - MAMMOGRAM ABNORMAL [None]
  - TOOTH DISORDER [None]
  - TOOTH ABSCESS [None]
  - SCIATICA [None]
  - PERIPHERAL VASCULAR DISORDER [None]
  - PERIODONTAL DISEASE [None]
  - PERIODONTITIS [None]
